FAERS Safety Report 21094609 (Version 5)
Quarter: 2023Q1

REPORT INFORMATION
  Report Type: Report from Study
  Country: US (occurrence: None)
  Receive Date: 20220718
  Receipt Date: 20230316
  Transmission Date: 20230418
  Serious: Yes (Hospitalization)
  Sender: FDA-Public Use
  Company Number: US-ROCHE-3133770

PATIENT
  Age: 58 Year
  Sex: Male
  Weight: 80.1 kg

DRUGS (3)
  1. ATEZOLIZUMAB [Suspect]
     Active Substance: ATEZOLIZUMAB
     Indication: Small cell lung cancer
     Route: 041
     Dates: end: 20210810
  2. CARBOPLATIN [Suspect]
     Active Substance: CARBOPLATIN
     Indication: Small cell lung cancer
     Route: 065
  3. ETOPOSIDE [Suspect]
     Active Substance: ETOPOSIDE
     Indication: Small cell lung cancer
     Route: 065

REACTIONS (10)
  - Radiation pneumonitis [Recovered/Resolved]
  - Small intestinal obstruction [Recovered/Resolved]
  - Device related thrombosis [Recovered/Resolved]
  - Cerebrovascular accident [Recovered/Resolved]
  - Atrial flutter [Recovered/Resolved]
  - Skin infection [Recovered/Resolved]
  - Febrile neutropenia [Unknown]
  - Platelet count decreased [Unknown]
  - Osteomyelitis [Unknown]
  - Diabetic foot [Unknown]

NARRATIVE: CASE EVENT DATE: 20210609
